FAERS Safety Report 4285192-X (Version None)
Quarter: 2004Q1

REPORT INFORMATION
  Report Type: 
  Country: None (occurrence: None)
  Receive Date: 20040204
  Receipt Date: 20040127
  Transmission Date: 20041129
  Serious: Yes (Hospitalization)
  Sender: FDA-Public Use
  Company Number: FR-ROCHE-357167

PATIENT
  Age: 64 Year
  Sex: Male
  Weight: 80 kg

DRUGS (5)
  1. CYMEVAN IV [Suspect]
     Indication: PNEUMONIA VIRAL
     Route: 042
     Dates: start: 20031027, end: 20031105
  2. VANCOMYCIN [Suspect]
     Indication: PNEUMONIA STAPHYLOCOCCAL
     Route: 042
     Dates: start: 20031022, end: 20031107
  3. AMIKACIN [Suspect]
     Indication: PNEUMONIA BACTERIAL
     Route: 042
     Dates: start: 20031022, end: 20031107
  4. FORTUM [Suspect]
     Indication: PNEUMONIA BACTERIAL
     Route: 042
     Dates: start: 20031022, end: 20031109
  5. TRIFLUCAN [Suspect]
     Route: 048
     Dates: start: 20031030, end: 20031111

REACTIONS (6)
  - BLOOD BILIRUBIN INCREASED [None]
  - HEPATOSPLENIC CANDIDIASIS [None]
  - HEPATOTOXICITY [None]
  - JAUNDICE [None]
  - JAUNDICE CHOLESTATIC [None]
  - LEUKOPENIA [None]
